FAERS Safety Report 5655981-5 (Version None)
Quarter: 2008Q1

REPORT INFORMATION
  Report Type: 
  Country: None (occurrence: None)
  Receive Date: 20080307
  Receipt Date: 20080226
  Transmission Date: 20080703
  Serious: Yes (Other)
  Sender: FDA-Public Use
  Company Number: US-PFIZER INC-2008018289

PATIENT
  Sex: Female

DRUGS (11)
  1. NEURONTIN [Suspect]
  2. LYRICA [Suspect]
     Indication: FIBROMYALGIA
  3. SOLU-MEDROL [Suspect]
     Indication: PAIN
  4. PERCOCET [Concomitant]
  5. XANAX [Concomitant]
  6. MUSCLE RELAXANTS [Concomitant]
  7. NORTRIPTYLINE HCL [Concomitant]
  8. OXYCONTIN [Concomitant]
  9. BETASERON [Concomitant]
  10. MEPERGAN [Concomitant]
  11. DETROL [Concomitant]

REACTIONS (6)
  - COMA [None]
  - FALL [None]
  - MEMORY IMPAIRMENT [None]
  - MULTIPLE SCLEROSIS [None]
  - NEUROPATHY PERIPHERAL [None]
  - SYSTEMIC LUPUS ERYTHEMATOSUS [None]
